FAERS Safety Report 23590993 (Version 1)
Quarter: 2024Q1

REPORT INFORMATION
  Report Type: Other
  Country: US (occurrence: None)
  Receive Date: 20240304
  Receipt Date: 20240304
  Transmission Date: 20240410
  Serious: Yes (Other)
  Sender: FDA-Public Use
  Company Number: US-ROCHE-3515912

PATIENT

DRUGS (7)
  1. RITUXIMAB [Suspect]
     Active Substance: RITUXIMAB
     Indication: Chronic lymphocytic leukaemia
     Dosage: ON C1D29
     Route: 065
  2. RITUXIMAB [Suspect]
     Active Substance: RITUXIMAB
     Dosage: ON C1D31
     Route: 065
  3. RITUXIMAB [Suspect]
     Active Substance: RITUXIMAB
     Indication: Chronic lymphocytic leukaemia
     Dosage: THEN 375 MG/M2 ON D1 FOR C3-C7.
     Route: 042
  4. LENALIDOMIDE [Suspect]
     Active Substance: LENALIDOMIDE
     Indication: Chronic lymphocytic leukaemia
     Dosage: FOR 21 DAYS (D) OUT OF A 35-DAY CYCLE (C) FOR C1, THEN 28D CYCLES FOR C2-C7.
     Route: 065
  5. LENALIDOMIDE [Suspect]
     Active Substance: LENALIDOMIDE
     Route: 065
  6. LENALIDOMIDE [Suspect]
     Active Substance: LENALIDOMIDE
     Route: 065
  7. LENALIDOMIDE [Suspect]
     Active Substance: LENALIDOMIDE
     Route: 065

REACTIONS (9)
  - Richter^s syndrome [Unknown]
  - Neutropenia [Unknown]
  - Pneumonia [Unknown]
  - Neoplasm skin [Unknown]
  - Neoplasm [Unknown]
  - Thrombocytopenia [Unknown]
  - Anaemia [Unknown]
  - Viral infection [Unknown]
  - Embolism venous [Unknown]
